FAERS Safety Report 21681835 (Version 1)
Quarter: 2022Q4

REPORT INFORMATION
  Report Type: Report from Study
  Country: US (occurrence: US)
  Receive Date: 20221205
  Receipt Date: 20221205
  Transmission Date: 20230113
  Serious: No
  Sender: FDA-Public Use
  Company Number: US-ABBVIE-4188718

PATIENT
  Sex: Male

DRUGS (1)
  1. RINVOQ [Suspect]
     Active Substance: UPADACITINIB
     Indication: Skin disorder
     Route: 048
     Dates: start: 202208

REACTIONS (3)
  - Condition aggravated [Unknown]
  - Off label use [Unknown]
  - Skin disorder [Unknown]
